FAERS Safety Report 7265893-1 (Version None)
Quarter: 2011Q1

REPORT INFORMATION
  Report Type: 
  Country: None (occurrence: None)
  Receive Date: 20110131
  Receipt Date: 20110119
  Transmission Date: 20110831
  Serious: Yes (Other)
  Sender: FDA-Public Use
  Company Number: B0694257A

PATIENT
  Age: 13 Year
  Sex: Male

DRUGS (4)
  1. ABACAVIR [Suspect]
     Indication: HIV INFECTION
  2. LAMIVUDINE [Suspect]
     Indication: HIV INFECTION
  3. KALETRA [Suspect]
     Indication: HIV INFECTION
  4. COTRIM [Concomitant]
     Indication: PROPHYLAXIS

REACTIONS (1)
  - PULMONARY TUBERCULOSIS [None]
